FAERS Safety Report 6983755-1 (Version None)
Quarter: 2010Q3

REPORT INFORMATION
  Report Type: 
  Country: None (occurrence: None)
  Receive Date: 20100914
  Receipt Date: 20081212
  Transmission Date: 20110219
  Serious: No
  Sender: FDA-Public Use
  Company Number: US-WYE-H07276308

PATIENT
  Sex: Female

DRUGS (1)
  1. ADVIL LIQUI-GELS [Suspect]
     Indication: HEADACHE
     Dosage: 2 OR 4 TABLETS PER DAY
     Route: 048
     Dates: start: 20080101

REACTIONS (2)
  - HEADACHE [None]
  - REBOUND EFFECT [None]
